FAERS Safety Report 5136481-8 (Version None)
Quarter: 2006Q4

REPORT INFORMATION
  Report Type: 
  Country: None (occurrence: None)
  Receive Date: 20061027
  Receipt Date: 20061016
  Transmission Date: 20070319
  Serious: Yes (Hospitalization)
  Sender: FDA-Public Use
  Company Number: US-JNJFOC-20061005571

PATIENT
  Age: 79 Year
  Sex: Male

DRUGS (11)
  1. TRAMADOL HCL [Suspect]
     Indication: DRUG USE FOR UNKNOWN INDICATION
     Route: 048
  2. GLUCOPHAGE [Suspect]
     Indication: DRUG USE FOR UNKNOWN INDICATION
  3. OMEPRAZOLE [Suspect]
     Indication: DRUG USE FOR UNKNOWN INDICATION
  4. ASPIRIN [Suspect]
     Indication: DRUG USE FOR UNKNOWN INDICATION
  5. CALCIUM ANTAGONIST [Suspect]
     Indication: DRUG USE FOR UNKNOWN INDICATION
  6. GLYBURIDE [Suspect]
     Indication: DRUG USE FOR UNKNOWN INDICATION
  7. ATYPICAL ANTIPSYCHOTIC [Suspect]
     Indication: DRUG USE FOR UNKNOWN INDICATION
  8. FLUCONAZOLE [Suspect]
     Indication: DRUG USE FOR UNKNOWN INDICATION
  9. APAP TAB [Suspect]
  10. APAP TAB [Suspect]
     Indication: DRUG USE FOR UNKNOWN INDICATION
  11. THIAZOLIDINEDIONE [Suspect]
     Indication: DRUG USE FOR UNKNOWN INDICATION

REACTIONS (13)
  - ALANINE AMINOTRANSFERASE INCREASED [None]
  - ASPARTATE AMINOTRANSFERASE INCREASED [None]
  - BLOOD CREATININE INCREASED [None]
  - BLOOD GLUCOSE DECREASED [None]
  - BLOOD GLUCOSE INCREASED [None]
  - BLOOD POTASSIUM INCREASED [None]
  - BLOOD UREA INCREASED [None]
  - BRADYCARDIA [None]
  - HYPERTENSION [None]
  - INTERNATIONAL NORMALISED RATIO INCREASED [None]
  - LIVER FUNCTION TEST ABNORMAL [None]
  - OVERDOSE [None]
  - RESPIRATORY ARREST [None]
